FAERS Safety Report 11473919 (Version 1)
Quarter: 2015Q3

REPORT INFORMATION
  Report Type: Spontaneous
  Country: US (occurrence: None)
  Receive Date: 20150908
  Receipt Date: 20150908
  Transmission Date: 20151125
  Serious: Yes (Other)
  Sender: FDA-Public Use
  Company Number: None

PATIENT
  Age: 41 Year
  Sex: Female
  Weight: 81.65 kg

DRUGS (8)
  1. MSM [Concomitant]
     Active Substance: DIMETHYL SULFONE
  2. AMBIEN [Concomitant]
     Active Substance: ZOLPIDEM TARTRATE
  3. MULTIVITAMIN [Concomitant]
     Active Substance: VITAMINS
  4. FLAXSEED [Concomitant]
     Active Substance: FLAX SEED
  5. SOOLANTRA [Suspect]
     Active Substance: IVERMECTIN
     Indication: ROSACEA
     Dosage: FINGERTIPS, APPLIED TO A SURFACE, USUALLY THE SKIN
     Dates: start: 20150902, end: 20150905
  6. PAXIL [Concomitant]
     Active Substance: PAROXETINE HYDROCHLORIDE
  7. ALLEGRA [Concomitant]
     Active Substance: FEXOFENADINE HYDROCHLORIDE
  8. VITAMIN D [Concomitant]
     Active Substance: CHOLECALCIFEROL

REACTIONS (3)
  - Pruritus [None]
  - Erythema [None]
  - Papule [None]

NARRATIVE: CASE EVENT DATE: 20150905
